FAERS Safety Report 4502949-8 (Version None)
Quarter: 2004Q4

REPORT INFORMATION
  Report Type: 
  Country: None (occurrence: None)
  Receive Date: 20041116
  Receipt Date: 20041116
  Transmission Date: 20050328
  Serious: No
  Sender: FDA-Public Use
  Company Number: None

PATIENT
  Age: 54 Year
  Sex: Female

DRUGS (1)
  1. PACLITAXEL [Suspect]
     Indication: INFUSION
     Dosage: 50ML/HR

REACTIONS (2)
  - BACK PAIN [None]
  - INFUSION RELATED REACTION [None]
